FAERS Safety Report 4591985-1 (Version None)
Quarter: 2005Q1

REPORT INFORMATION
  Report Type: 
  Country: None (occurrence: None)
  Receive Date: 20050125
  Receipt Date: 20041004
  Transmission Date: 20050727
  Serious: No
  Sender: FDA-Public Use
  Company Number: USA040874344

PATIENT
  Age: 75 Year
  Sex: Female

DRUGS (12)
  1. FORTEO [Suspect]
     Indication: OSTEOPOROSIS
     Dosage: 20 UG DAY
     Dates: start: 20040730
  2. BENADRYL [Concomitant]
  3. DIOVAN [Concomitant]
  4. CALCIUM WITH VITAMIN D [Concomitant]
  5. MULTI-VITAMINS [Concomitant]
  6. FLEXERIL [Concomitant]
  7. ASPIRIN [Concomitant]
  8. SINGULAIR (MONTELUKAST) [Concomitant]
  9. ZOCOR [Concomitant]
  10. NAPROXEN SODIUM [Concomitant]
  11. PRILOSEC (OMEPRAZOLE RATIOPHARM) [Concomitant]
  12. PROTONIX [Concomitant]

REACTIONS (8)
  - BONE PAIN [None]
  - DIARRHOEA [None]
  - GROWING PAINS [None]
  - HAEMORRHOIDS [None]
  - INJECTION SITE HAEMORRHAGE [None]
  - RECTAL HAEMORRHAGE [None]
  - RHINORRHOEA [None]
  - VOMITING [None]
